FAERS Safety Report 7341154-7 (Version None)
Quarter: 2011Q1

REPORT INFORMATION
  Report Type: 
  Country: None (occurrence: None)
  Receive Date: 20110309
  Receipt Date: 20110307
  Transmission Date: 20110831
  Serious: Yes (Congenital Anomaly)
  Sender: FDA-Public Use
  Company Number: A0917204A

PATIENT
  Sex: Male

DRUGS (1)
  1. PAXIL [Suspect]
     Dosage: 20MG UNKNOWN
     Route: 064

REACTIONS (13)
  - VENTRICULAR SEPTAL DEFECT [None]
  - UPPER GASTROINTESTINAL HAEMORRHAGE [None]
  - DRUG EXPOSURE DURING PREGNANCY [None]
  - CONGENITAL MUSCULOSKELETAL ANOMALY [None]
  - HEART DISEASE CONGENITAL [None]
  - CONGENITAL INGUINAL HERNIA [None]
  - ATRIAL SEPTAL DEFECT [None]
  - CEREBRAL PALSY [None]
  - PULMONARY ARTERY STENOSIS CONGENITAL [None]
  - DYSTONIA [None]
  - CONGENITAL MITRAL VALVE INCOMPETENCE [None]
  - CONVULSION [None]
  - QUADRIPLEGIA [None]
